FAERS Safety Report 8259548-4 (Version None)
Quarter: 2012Q2

REPORT INFORMATION
  Report Type: 
  Country: None (occurrence: None)
  Receive Date: 20120404
  Receipt Date: 20120402
  Transmission Date: 20120825
  Serious: Yes (Hospitalization)
  Sender: FDA-Public Use
  Company Number: US-MERCK-1102USA00897

PATIENT
  Age: 62 Year
  Sex: Female

DRUGS (2)
  1. BONIVA [Suspect]
     Route: 048
     Dates: start: 20060101, end: 20100101
  2. FOSAMAX [Suspect]
     Indication: PROPHYLAXIS
     Route: 048
     Dates: start: 19990101, end: 20060101

REACTIONS (22)
  - DIVERTICULUM OESOPHAGEAL [None]
  - FEMUR FRACTURE [None]
  - THROMBOPHLEBITIS SUPERFICIAL [None]
  - DIZZINESS [None]
  - OTITIS MEDIA ACUTE [None]
  - LOW TURNOVER OSTEOPATHY [None]
  - FOOT FRACTURE [None]
  - CONSTIPATION [None]
  - ARTHRALGIA [None]
  - EUSTACHIAN TUBE DYSFUNCTION [None]
  - HAEMATOCRIT DECREASED [None]
  - THROMBOSED VARICOSE VEIN [None]
  - SYNCOPE [None]
  - FALL [None]
  - TYPE V HYPERLIPIDAEMIA [None]
  - OSTEOPENIA [None]
  - VARICOSE VEIN [None]
  - OEDEMA PERIPHERAL [None]
  - BREAST MASS [None]
  - NAUSEA [None]
  - OVERWEIGHT [None]
  - DEEP VEIN THROMBOSIS [None]
